FAERS Safety Report 10193135 (Version 1)
Quarter: 2014Q2

REPORT INFORMATION
  Report Type: Spontaneous
  Country: US (occurrence: US)
  Receive Date: 20140524
  Receipt Date: 20140524
  Transmission Date: 20141212
  Serious: No
  Sender: FDA-Public Use
  Company Number: US-SA-2013SA115540

PATIENT
  Age: 43 Year
  Sex: Female

DRUGS (4)
  1. LANTUS [Suspect]
     Route: 058
     Dates: start: 201303
  2. CELEBREX [Suspect]
     Route: 065
  3. MILNACIPRAN [Suspect]
     Route: 065
  4. BENADRYL [Concomitant]

REACTIONS (6)
  - Fatigue [Unknown]
  - Urticaria [Recovered/Resolved]
  - Pruritus [Recovered/Resolved]
  - Dyspnoea [Unknown]
  - Oedema peripheral [Unknown]
  - Weight increased [Recovered/Resolved]
